FAERS Safety Report 5042732-0 (Version None)
Quarter: 2006Q3

REPORT INFORMATION
  Report Type: 
  Country: None (occurrence: None)
  Receive Date: 20060705
  Receipt Date: 20020418
  Transmission Date: 20061208
  Serious: Yes (Death, Congenital Anomaly)
  Sender: FDA-Public Use
  Company Number: FR-AVENTIS-200211607FR

PATIENT
  Sex: Female
  Weight: 2.1 kg

DRUGS (14)
  1. TORENTAL [Suspect]
     Route: 064
     Dates: end: 19960223
  2. ASPEGIC 1000 [Suspect]
     Route: 064
     Dates: start: 19960403
  3. ISOPTIN SR [Suspect]
     Route: 064
  4. PROZAC [Suspect]
     Route: 064
     Dates: end: 19960131
  5. COVERSYL [Suspect]
     Route: 064
     Dates: start: 19940630, end: 19960227
  6. XANAX [Suspect]
     Route: 064
     Dates: start: 19940630, end: 19960131
  7. MIXTARD HUMAN 70/30 [Suspect]
     Indication: DIABETES MELLITUS INSULIN-DEPENDENT
     Route: 064
     Dates: end: 19960227
  8. LIPANTHYL [Suspect]
     Route: 064
     Dates: start: 19940101, end: 19960227
  9. INSULATARD NPH HUMAN [Suspect]
     Route: 064
     Dates: start: 19960227
  10. ACTRAPID [Suspect]
     Route: 064
     Dates: start: 19960227
  11. SOTALOL HCL [Suspect]
     Route: 064
  12. ISOPTIN [Suspect]
     Route: 064
  13. CATAPRES [Suspect]
     Indication: HYPERTENSION
     Route: 064
     Dates: start: 19960701
  14. LASILIX [Suspect]
     Indication: HYPERTENSION
     Route: 064
     Dates: start: 19960101

REACTIONS (11)
  - CAESAREAN SECTION [None]
  - CONGENITAL TRICUSPID VALVE ATRESIA [None]
  - CYANOSIS [None]
  - DRUG EXPOSURE DURING PREGNANCY [None]
  - HAEMODYNAMIC INSTABILITY [None]
  - HEART DISEASE CONGENITAL [None]
  - METABOLIC ACIDOSIS [None]
  - NEONATAL DISORDER [None]
  - NEONATAL HYPOTENSION [None]
  - PREMATURE BABY [None]
  - VENTRICULAR FIBRILLATION [None]
